FAERS Safety Report 11411430 (Version 1)
Quarter: 2015Q3

REPORT INFORMATION
  Report Type: Spontaneous
  Country: US (occurrence: US)
  Receive Date: 20150821
  Receipt Date: 20150821
  Transmission Date: 20151125
  Serious: Yes (Other)
  Sender: FDA-Public Use
  Company Number: US-ELI_LILLY_AND_COMPANY-US201007002371

PATIENT
  Sex: Male

DRUGS (4)
  1. HUMULIN N [Suspect]
     Active Substance: INSULIN HUMAN
     Indication: DIABETES MELLITUS
     Dosage: 50 U, 2/D
     Dates: start: 19950712, end: 20100709
  2. HUMULIN N [Suspect]
     Active Substance: INSULIN HUMAN
     Dosage: 65 U, 2/D
     Dates: start: 20100709, end: 20100710
  3. HUMULIN N [Suspect]
     Active Substance: INSULIN HUMAN
     Dosage: 60 U, 2/D
     Dates: start: 20100710
  4. POTASSIUM [Concomitant]
     Active Substance: POTASSIUM

REACTIONS (6)
  - Blood glucose decreased [Recovered/Resolved]
  - Blood glucose increased [Recovered/Resolved]
  - Glycosylated haemoglobin increased [Unknown]
  - Paraesthesia [Recovering/Resolving]
  - Protein urine present [Unknown]
  - Disorientation [Recovered/Resolved]

NARRATIVE: CASE EVENT DATE: 20100706
